FAERS Safety Report 5007973-7 (Version None)
Quarter: 2006Q2

REPORT INFORMATION
  Report Type: 
  Country: None (occurrence: None)
  Receive Date: 20060517
  Receipt Date: 20060505
  Transmission Date: 20061013
  Serious: Yes (Death, Other)
  Sender: FDA-Public Use
  Company Number: 2006062044

PATIENT
  Age: 78 Year
  Sex: Male

DRUGS (2)
  1. XALATAN [Suspect]
     Indication: OPEN ANGLE GLAUCOMA
     Dosage: UNKNOWN
     Route: 065
  2. XALACOM (LATANOPROST, TIMOLOL) [Suspect]
     Indication: OPEN ANGLE GLAUCOMA
     Dosage: UNKNOWN
     Route: 065

REACTIONS (1)
  - DEATH [None]
